FAERS Safety Report 22770282 (Version 2)
Quarter: 2024Q1

REPORT INFORMATION
  Report Type: Spontaneous
  Country: LU (occurrence: LU)
  Receive Date: 20230801
  Receipt Date: 20240315
  Transmission Date: 20240410
  Serious: Yes (Other)
  Sender: FDA-Public Use
  Company Number: None

PATIENT
  Age: 29 Year
  Sex: Female

DRUGS (2)
  1. RIFAMPIN [Suspect]
     Active Substance: RIFAMPIN
     Indication: Latent tuberculosis
     Dosage: UNK
     Route: 048
     Dates: start: 202305, end: 202307
  2. ISONIAZID [Suspect]
     Active Substance: ISONIAZID
     Indication: Latent tuberculosis
     Dosage: UNK
     Route: 048
     Dates: start: 202305, end: 202307

REACTIONS (2)
  - Palpitations [Not Recovered/Not Resolved]
  - Bundle branch block left [Not Recovered/Not Resolved]

NARRATIVE: CASE EVENT DATE: 20230701
